FAERS Safety Report 23692622 (Version 1)
Quarter: 2024Q1

REPORT INFORMATION
  Report Type: Spontaneous
  Country: US (occurrence: None)
  Receive Date: 20240330
  Receipt Date: 20240330
  Transmission Date: 20240410
  Serious: Yes (Life-Threatening, Hospitalization)
  Sender: FDA-Public Use
  Company Number: None

PATIENT
  Age: 29 Year
  Sex: Male
  Weight: 90.9 kg

DRUGS (3)
  1. DUPILUMAB [Suspect]
     Active Substance: DUPILUMAB
     Indication: Dermatitis atopic
     Dosage: OTHER FREQUENCY : Q2WEEKS;?
     Route: 058
     Dates: start: 20240329, end: 20240329
  2. DUPILUMAB [Suspect]
     Active Substance: DUPILUMAB
     Indication: Asthma
  3. DUPILUMAB [Suspect]
     Active Substance: DUPILUMAB
     Indication: Infection

REACTIONS (17)
  - Anaphylactic reaction [None]
  - Pruritus [None]
  - Urticaria [None]
  - Eyelid oedema [None]
  - Dyspnoea [None]
  - Stridor [None]
  - Presyncope [None]
  - Confusional state [None]
  - Gait disturbance [None]
  - Cyanosis [None]
  - Oxygen saturation decreased [None]
  - Tachycardia [None]
  - Blood lactic acid increased [None]
  - Anion gap increased [None]
  - Neutrophil count increased [None]
  - Leukocytosis [None]
  - Sepsis [None]

NARRATIVE: CASE EVENT DATE: 20240329
